FAERS Safety Report 18719329 (Version 1)
Quarter: 2021Q1

REPORT INFORMATION
  Report Type: Spontaneous
  Country: US (occurrence: GR)
  Receive Date: 20210108
  Receipt Date: 20210108
  Transmission Date: 20210419
  Serious: Yes (Other)
  Sender: FDA-Public Use
  Company Number: US-ANIPHARMA-2021-GR-000001

PATIENT
  Age: 68 Year
  Sex: Male

DRUGS (2)
  1. DILATREND [Concomitant]
     Active Substance: CARVEDILOL
     Dosage: 12.5 MG DAILY
     Route: 048
  2. ATACAND [Suspect]
     Active Substance: CANDESARTAN CILEXETIL
     Indication: HYPERTENSION
     Dosage: 8 MG DAILY
     Route: 048

REACTIONS (1)
  - Congenital cystic kidney disease [Unknown]
